FAERS Safety Report 13329118 (Version 2)
Quarter: 2017Q2

REPORT INFORMATION
  Report Type: Report from Study
  Country: US (occurrence: US)
  Receive Date: 20170313
  Receipt Date: 20170621
  Transmission Date: 20170830
  Serious: Yes (Hospitalization)
  Sender: FDA-Public Use
  Company Number: US-UCBSA-2016031454

PATIENT
  Age: 10 Year
  Sex: Female

DRUGS (5)
  1. LEVETIRACETAM. [Suspect]
     Active Substance: LEVETIRACETAM
     Indication: SEIZURE
     Dosage: 5 ML AT AM AND 7.5 ML AT PM
  2. HYDROXYZINE [Concomitant]
     Active Substance: HYDROXYZINE HYDROCHLORIDE
     Indication: ANXIETY
     Dosage: 1 OR 2 10 MG AS NEEDED
  3. LAMICTAL [Concomitant]
     Active Substance: LAMOTRIGINE
     Indication: PRODUCT USED FOR UNKNOWN INDICATION
  4. LEVETIRACETAM. [Suspect]
     Active Substance: LEVETIRACETAM
     Dosage: 7.5 ML, 2X/DAY (BID)
  5. ZONISAMIDE. [Concomitant]
     Active Substance: ZONISAMIDE
     Indication: SEIZURE
     Dosage: 3-100 MG, ONCE DAILY (QD)

REACTIONS (8)
  - Dizziness [Unknown]
  - Panic attack [Unknown]
  - Generalised tonic-clonic seizure [Unknown]
  - Decreased appetite [Unknown]
  - Anxiety [Unknown]
  - Abasia [Unknown]
  - Anger [Unknown]
  - Drug ineffective [Unknown]
